FAERS Safety Report 7688389-1 (Version None)
Quarter: 2011Q3

REPORT INFORMATION
  Report Type: 
  Country: None (occurrence: None)
  Receive Date: 20110817
  Receipt Date: 20110805
  Transmission Date: 20111222
  Serious: Yes (Hospitalization)
  Sender: FDA-Public Use
  Company Number: US-SANOFI-AVENTIS-2011SA044376

PATIENT
  Age: 83 Year
  Sex: Female
  Weight: 90 kg

DRUGS (14)
  1. DRONEDARONE HCL [Suspect]
     Indication: ATRIAL FIBRILLATION
     Route: 048
     Dates: start: 20110118, end: 20110201
  2. IRBESARTAN [Concomitant]
  3. GLIPIZIDE [Concomitant]
  4. VITAMIN D [Concomitant]
  5. GABAPENTIN [Concomitant]
  6. AMLODIPINE [Concomitant]
     Dates: end: 20110120
  7. OXYCODONE HCL [Concomitant]
  8. LACTULOSE [Concomitant]
  9. COLCHICINE [Concomitant]
     Dates: end: 20110120
  10. ALLOPURINOL [Concomitant]
  11. DIGOXIN [Suspect]
     Dates: end: 20110127
  12. LOVAZA [Concomitant]
  13. FUROSEMIDE [Concomitant]
  14. WARFARIN SODIUM [Concomitant]
     Dosage: 47.5MG WEEKLY

REACTIONS (2)
  - BRADYCARDIA [None]
  - PULMONARY HYPERTENSION [None]
